FAERS Safety Report 8093972-8 (Version None)
Quarter: 2012Q1

REPORT INFORMATION
  Report Type: 
  Country: None (occurrence: None)
  Receive Date: 20120130
  Receipt Date: 20120117
  Transmission Date: 20120608
  Serious: Yes (Other)
  Sender: FDA-Public Use
  Company Number: US-ELI_LILLY_AND_COMPANY-US201006001278

PATIENT
  Sex: Female

DRUGS (9)
  1. TUMS                               /00108001/ [Concomitant]
     Indication: DYSPEPSIA
  2. FORTEO [Suspect]
     Dosage: 20 UG, QD
  3. FORTEO [Suspect]
     Dosage: 20 UG, QD
  4. CALCIUM [Concomitant]
     Dosage: 1000 MG, QD
  5. FORTEO [Suspect]
     Indication: OSTEOPOROSIS
     Dosage: 20 UG, QD
     Dates: start: 20100301
  6. FORTEO [Suspect]
     Dosage: 20 UG, QD
  7. FORTEO [Suspect]
     Dosage: 20 UG, QD
  8. FORTEO [Suspect]
     Dosage: 20 UG, QD
     Route: 065
  9. FORTEO [Suspect]
     Dosage: 20 UG, QD

REACTIONS (15)
  - WEIGHT DECREASED [None]
  - NERVOUSNESS [None]
  - NEGATIVE THOUGHTS [None]
  - TOOTH DISORDER [None]
  - RENAL FAILURE [None]
  - NEPHROLITHIASIS [None]
  - FATIGUE [None]
  - MALAISE [None]
  - BLOOD CALCIUM INCREASED [None]
  - APATHY [None]
  - INCREASED APPETITE [None]
  - FEELING ABNORMAL [None]
  - DRUG DOSE OMISSION [None]
  - ASTHENIA [None]
  - DEPRESSION [None]
